FAERS Safety Report 4677678-0 (Version None)
Quarter: 2005Q2

REPORT INFORMATION
  Report Type: 
  Country: None (occurrence: None)
  Receive Date: 20050531
  Receipt Date: 20050519
  Transmission Date: 20051028
  Serious: Yes (Hospitalization)
  Sender: FDA-Public Use
  Company Number: DE-BRISTOL-MYERS SQUIBB COMPANY-12974937

PATIENT
  Age: 44 Year
  Sex: Male
  Weight: 70 kg

DRUGS (2)
  1. ETOPOSIDE [Suspect]
     Indication: NEOPLASM MALIGNANT
     Dates: start: 20050111
  2. CISPLATIN [Suspect]
     Indication: NEOPLASM MALIGNANT
     Dates: start: 20050111

REACTIONS (2)
  - LEUKOPENIA [None]
  - PNEUMONIA [None]
